FAERS Safety Report 6554372-2 (Version None)
Quarter: 2010Q1

REPORT INFORMATION
  Report Type: 
  Country: None (occurrence: None)
  Receive Date: 20100127
  Receipt Date: 20100122
  Transmission Date: 20100710
  Serious: Yes (Hospitalization)
  Sender: FDA-Public Use
  Company Number: B0628584A

PATIENT
  Sex: Female

DRUGS (5)
  1. AUGMENTIN [Suspect]
     Dosage: 1G TWICE PER DAY
     Route: 048
     Dates: start: 20091210, end: 20091216
  2. METFORMINE CHLORHYDRATE [Suspect]
     Dosage: 1UNIT TWICE PER DAY
     Route: 048
     Dates: start: 20091105, end: 20091217
  3. VILDAGLIPTIN [Suspect]
     Dosage: 1UNIT TWICE PER DAY
     Route: 048
     Dates: start: 20091105, end: 20091217
  4. MEDIATOR [Concomitant]
     Dosage: 150MG THREE TIMES PER DAY
     Route: 048
     Dates: end: 20091217
  5. EFFEXOR XR [Concomitant]
     Dosage: 75MG THREE TIMES PER DAY
     Route: 048
     Dates: start: 20070101, end: 20091217

REACTIONS (4)
  - GENERAL PHYSICAL HEALTH DETERIORATION [None]
  - HEPATIC FAILURE [None]
  - HEPATITIS [None]
  - HEPATOCELLULAR INJURY [None]
